FAERS Safety Report 13707759 (Version 1)
Quarter: 2017Q2

REPORT INFORMATION
  Report Type: Not Available
  Country: BR (occurrence: BR)
  Receive Date: 20170630
  Receipt Date: 20170630
  Transmission Date: 20170830
  Serious: Yes (Hospitalization, Other)
  Sender: FDA-Public Use
  Company Number: BR-AKORN-61568

PATIENT
  Age: 58 Year
  Sex: Female
  Weight: 85 kg

DRUGS (1)
  1. COSOPT [Suspect]
     Active Substance: DORZOLAMIDE HYDROCHLORIDE\TIMOLOL MALEATE

REACTIONS (9)
  - Product container seal issue [None]
  - Dengue fever [Unknown]
  - Eye irritation [Recovered/Resolved]
  - Dysgeusia [Recovered/Resolved]
  - Erysipelas [Unknown]
  - Lacrimation increased [Recovered/Resolved]
  - Weight decreased [Unknown]
  - Feeding disorder [Unknown]
  - Abdominal pain upper [Unknown]

NARRATIVE: CASE EVENT DATE: 20170507
